FAERS Safety Report 4801485-9 (Version None)
Quarter: 2005Q4

REPORT INFORMATION
  Report Type: 
  Country: None (occurrence: None)
  Receive Date: 20051018
  Receipt Date: 20051006
  Transmission Date: 20060501
  Serious: Yes (Death)
  Sender: FDA-Public Use
  Company Number: US-JNJFOC-20051001752

PATIENT
  Sex: Female
  Weight: 35.38 kg

DRUGS (20)
  1. INFLIXIMAB [Suspect]
     Indication: RHEUMATOID ARTHRITIS
     Dosage: THERAPY DATES: 08-JAN-2001 UNTIL ^AFTER JUN-2004^
     Route: 042
  2. PREDNISONE [Concomitant]
  3. DARVOCET [Concomitant]
  4. DARVOCET [Concomitant]
  5. FOLIC ACID [Concomitant]
  6. CALCIUM GLUCONATE [Concomitant]
  7. VITAMIN D [Concomitant]
  8. FEOSOL [Concomitant]
  9. MAALOX FAST BLOCKER [Concomitant]
  10. MAALOX FAST BLOCKER [Concomitant]
  11. MULTI-VITAMIN [Concomitant]
  12. MULTI-VITAMIN [Concomitant]
  13. MULTI-VITAMIN [Concomitant]
  14. MULTI-VITAMIN [Concomitant]
  15. MULTI-VITAMIN [Concomitant]
  16. MULTI-VITAMIN [Concomitant]
  17. MULTI-VITAMIN [Concomitant]
  18. MULTI-VITAMIN [Concomitant]
  19. TOPROL-XL [Concomitant]
  20. METHOTREXATE [Concomitant]

REACTIONS (1)
  - GASTRIC CANCER [None]
